FAERS Safety Report 10913996 (Version 2)
Quarter: 2015Q3

REPORT INFORMATION
  Report Type: Spontaneous
  Country: IT (occurrence: IT)
  Receive Date: 20150313
  Receipt Date: 20150918
  Transmission Date: 20151125
  Serious: Yes (Other)
  Sender: FDA-Public Use
  Company Number: IT-GE HEALTHCARE MEDICAL DIAGNOSTICS-VISP-PR-1503S-0063

PATIENT
  Age: 90 Year
  Sex: Male

DRUGS (5)
  1. CARDIOASPIRIN [Concomitant]
     Active Substance: ASPIRIN
  2. NORVASC [Concomitant]
     Active Substance: AMLODIPINE BESYLATE
  3. VISIPAQUE [Suspect]
     Active Substance: IODIXANOL
     Indication: PRODUCT USED FOR UNKNOWN INDICATION
     Route: 042
     Dates: start: 20150304, end: 20150304
  4. VISIPAQUE [Suspect]
     Active Substance: IODIXANOL
     Indication: DIAGNOSTIC PROCEDURE
  5. CARDURA [Concomitant]
     Active Substance: DOXAZOSIN MESYLATE

REACTIONS (1)
  - Sialoadenitis [Recovering/Resolving]

NARRATIVE: CASE EVENT DATE: 20150304
